FAERS Safety Report 4423955-8 (Version None)
Quarter: 2004Q3

REPORT INFORMATION
  Report Type: 
  Country: None (occurrence: None)
  Receive Date: 20040812
  Receipt Date: 20040728
  Transmission Date: 20050211
  Serious: Yes (Hospitalization)
  Sender: FDA-Public Use
  Company Number: NL-JNJFOC-20040101605

PATIENT
  Age: 59 Year
  Sex: Female

DRUGS (5)
  1. REMICADE [Suspect]
     Indication: RHEUMATOID ARTHRITIS
     Route: 042
  2. METHOTREXATE [Concomitant]
     Dates: start: 20011213
  3. FOLIC ACID [Concomitant]
     Dates: start: 20011113
  4. DICLOFENAC [Concomitant]
     Dates: start: 20020212
  5. FUROSEMIDE [Concomitant]

REACTIONS (1)
  - HIP ARTHROPLASTY [None]
